FAERS Safety Report 7588198-8 (Version None)
Quarter: 2011Q3

REPORT INFORMATION
  Report Type: 
  Country: None (occurrence: None)
  Receive Date: 20110705
  Receipt Date: 20110614
  Transmission Date: 20111222
  Serious: Yes (Other)
  Sender: FDA-Public Use
  Company Number: US-BAYER-201025963NA

PATIENT
  Age: 19 Year
  Sex: Female
  Weight: 68.934 kg

DRUGS (3)
  1. DROSPIRENONE AND ETHINYL ESTRADIOL [Suspect]
     Indication: CONTRACEPTION
     Dosage: 1 DF, QD
     Route: 048
     Dates: start: 20080701, end: 20091117
  2. YAZ [Suspect]
     Indication: CONTRACEPTION
     Dosage: 1 DF, QD
     Route: 048
     Dates: start: 20061001
  3. YASMIN [Suspect]
     Indication: CONTRACEPTION
     Dosage: 1 DF, QD
     Route: 048
     Dates: start: 20070101, end: 20080701

REACTIONS (8)
  - CHOLELITHIASIS [None]
  - CHOLECYSTITIS CHRONIC [None]
  - ANXIETY [None]
  - ABDOMINAL PAIN UPPER [None]
  - ANHEDONIA [None]
  - GALLBLADDER DISORDER [None]
  - PAIN [None]
  - VOMITING [None]
